FAERS Safety Report 6911294-2 (Version None)
Quarter: 2010Q3

REPORT INFORMATION
  Report Type: 
  Country: None (occurrence: None)
  Receive Date: 20100806
  Receipt Date: 20100727
  Transmission Date: 20110219
  Serious: Yes (Life-Threatening, Other)
  Sender: FDA-Public Use
  Company Number: US-PFIZER INC-2006149364

PATIENT
  Sex: Male
  Weight: 75 kg

DRUGS (8)
  1. NEURONTIN [Suspect]
     Indication: BACK PAIN
     Dosage: 300 MG, 2X/DAY
     Dates: start: 20010723
  2. NEURONTIN [Suspect]
     Indication: PERIODIC LIMB MOVEMENT DISORDER
     Dosage: 100 MG, 3X/DAY
     Dates: start: 20011102
  3. NEURONTIN [Suspect]
     Indication: VESTIBULAR DISORDER
     Dosage: 300 MG, 3X/DAY
     Dates: start: 20011104
  4. ROBAXIN [Concomitant]
  5. ULTRAM [Concomitant]
     Dates: start: 20000301
  6. CLONIDINE [Concomitant]
     Dates: start: 20000301
  7. NAPROSYN [Concomitant]
  8. TORADOL [Concomitant]

REACTIONS (4)
  - DEPRESSION [None]
  - DRUG INEFFECTIVE [None]
  - OFF LABEL USE [None]
  - SUICIDE ATTEMPT [None]
